FAERS Safety Report 6386054-4 (Version None)
Quarter: 2009Q4

REPORT INFORMATION
  Report Type: 
  Country: None (occurrence: None)
  Receive Date: 20091002
  Receipt Date: 20081114
  Transmission Date: 20100525
  Serious: No
  Sender: FDA-Public Use
  Company Number: US-ASTRAZENECA-2008UW25583

PATIENT

DRUGS (1)
  1. ARIMIDEX [Suspect]
     Dosage: 1 MG
     Route: 048
     Dates: start: 20080501

REACTIONS (1)
  - BLOOD CHOLESTEROL INCREASED [None]
